FAERS Safety Report 15193380 (Version 1)
Quarter: 2018Q3

REPORT INFORMATION
  Report Type: Spontaneous
  Country: US (occurrence: US)
  Receive Date: 20180626
  Receipt Date: 20180626
  Transmission Date: 20181010
  Serious: Yes (Death, Life-Threatening)
  Sender: FDA-Public Use
  Company Number: None

PATIENT
  Age: 94 Year
  Sex: Male
  Weight: 63.5 kg

DRUGS (1)
  1. CEFUROXIME AXETIL. [Suspect]
     Active Substance: CEFUROXIME AXETIL
     Indication: BRONCHITIS

REACTIONS (6)
  - Laryngospasm [None]
  - Foreign body in respiratory tract [None]
  - Dyspnoea [None]
  - Product size issue [None]
  - Product coating issue [None]
  - Dysphagia [None]
